FAERS Safety Report 4504968-4 (Version None)
Quarter: 2004Q4

REPORT INFORMATION
  Report Type: 
  Country: None (occurrence: None)
  Receive Date: 20041019
  Receipt Date: 20040726
  Transmission Date: 20050328
  Serious: No
  Sender: FDA-Public Use
  Company Number: 2004-06-0476

PATIENT
  Age: 76 Year
  Sex: Male
  Weight: 68.9467 kg

DRUGS (2)
  1. CLARINEX [Suspect]
     Indication: RHINITIS ALLERGIC
     Dosage: 5MG QD ORAL
     Route: 048
     Dates: start: 20040510, end: 20040510
  2. MULTI-VITAMINS [Concomitant]

REACTIONS (1)
  - MOUTH ULCERATION [None]
